FAERS Safety Report 12210587 (Version 1)
Quarter: 2016Q1

REPORT INFORMATION
  Report Type: Spontaneous
  Country: US (occurrence: US)
  Receive Date: 20160325
  Receipt Date: 20160325
  Transmission Date: 20160526
  Serious: No
  Sender: FDA-Public Use
  Company Number: US-GLAXOSMITHKLINE-US2016037140

PATIENT
  Age: 81 Year
  Sex: Female

DRUGS (14)
  1. MONTELUKAST [Concomitant]
     Active Substance: MONTELUKAST SODIUM
  2. PROAIR HFA [Concomitant]
     Active Substance: ALBUTEROL SULFATE
  3. MANGANESE [Concomitant]
     Active Substance: MANGANESE\MANGANESE CHLORIDE
  4. BREO ELLIPTA [Suspect]
     Active Substance: FLUTICASONE FUROATE\VILANTEROL TRIFENATATE
     Indication: ASTHMA
     Dosage: 1 PUFF(S), QD
     Route: 055
     Dates: start: 201602
  5. BIOTIN [Concomitant]
     Active Substance: BIOTIN
  6. XOLAIR [Concomitant]
     Active Substance: OMALIZUMAB
  7. FOLIC ACID. [Concomitant]
     Active Substance: FOLIC ACID
  8. CITALOPRAM [Concomitant]
     Active Substance: CITALOPRAM HYDROBROMIDE
  9. MOBIC [Concomitant]
     Active Substance: MELOXICAM
  10. VALSARTAN. [Concomitant]
     Active Substance: VALSARTAN
  11. CARTIA (DILTIAZEM HYDROCHLORIDE) [Concomitant]
  12. NASACORT [Concomitant]
     Active Substance: TRIAMCINOLONE ACETONIDE
  13. SPIRIVA [Concomitant]
     Active Substance: TIOTROPIUM BROMIDE MONOHYDRATE
  14. CALCIUM [Concomitant]
     Active Substance: CALCIUM

REACTIONS (7)
  - Muscle spasms [Recovering/Resolving]
  - Drug dispensing error [Unknown]
  - Viral infection [Unknown]
  - Malaise [Unknown]
  - Drug dose omission [Unknown]
  - Asthenia [Unknown]
  - Cough [Unknown]

NARRATIVE: CASE EVENT DATE: 201602
